FAERS Safety Report 8470905-3 (Version None)
Quarter: 2012Q2

REPORT INFORMATION
  Report Type: 
  Country: None (occurrence: None)
  Receive Date: 20120627
  Receipt Date: 20120618
  Transmission Date: 20120825
  Serious: Yes (Hospitalization)
  Sender: FDA-Public Use
  Company Number: DE-BRISTOL-MYERS SQUIBB COMPANY-16705758

PATIENT
  Age: 74 Year
  Sex: Male

DRUGS (2)
  1. MITOMYCIN [Suspect]
     Indication: PANCREATIC CARCINOMA METASTATIC
     Dosage: INJ
     Route: 042
     Dates: start: 20120525
  2. GEMCITABINE [Suspect]
     Indication: PANCREATIC CARCINOMA METASTATIC
     Route: 042
     Dates: start: 20120525

REACTIONS (2)
  - GENERAL PHYSICAL HEALTH DETERIORATION [None]
  - JAUNDICE [None]
